FAERS Safety Report 17235914 (Version 1)
Quarter: 2020Q1

REPORT INFORMATION
  Report Type: Spontaneous
  Country: PT (occurrence: PT)
  Receive Date: 20200106
  Receipt Date: 20200106
  Transmission Date: 20200409
  Serious: Yes (Other)
  Sender: FDA-Public Use
  Company Number: PT-ACCORD-168769

PATIENT
  Age: 59 Year
  Sex: Female
  Weight: 58.9 kg

DRUGS (1)
  1. CISPLATIN ACCORD [Suspect]
     Active Substance: CISPLATIN
     Indication: GASTRIC CANCER
     Dosage: CYCLE 3/3 WEEKS
     Route: 042
     Dates: start: 20191218, end: 20191218

REACTIONS (4)
  - Erythema [Recovered/Resolved]
  - Flushing [Recovered/Resolved]
  - Pruritus [Recovered/Resolved]
  - Off label use [Unknown]

NARRATIVE: CASE EVENT DATE: 20191218
